FAERS Safety Report 6131499-0 (Version None)
Quarter: 2009Q1

REPORT INFORMATION
  Report Type: 
  Country: None (occurrence: None)
  Receive Date: 20090325
  Receipt Date: 20080827
  Transmission Date: 20090719
  Serious: Yes (Other)
  Sender: FDA-Public Use
  Company Number: US-BRISTOL-MYERS SQUIBB COMPANY-14317689

PATIENT
  Age: 64 Year
  Sex: Male

DRUGS (5)
  1. ERBITUX [Suspect]
     Indication: HEAD AND NECK CANCER
     Dosage: APPROXIMATELY 125 ML OF ERBITUX WAS TAKEN.
  2. BENADRYL [Concomitant]
     Route: 042
  3. TAGAMET [Concomitant]
     Route: 042
  4. DECADRON [Concomitant]
     Route: 042
  5. ANZEMET [Concomitant]
     Route: 048

REACTIONS (3)
  - PRURITUS [None]
  - TREMOR [None]
  - URTICARIA [None]
